FAERS Safety Report 6892149-9 (Version None)
Quarter: 2010Q3

REPORT INFORMATION
  Report Type: 
  Country: None (occurrence: None)
  Receive Date: 20100731
  Receipt Date: 20080209
  Transmission Date: 20110219
  Serious: No
  Sender: FDA-Public Use
  Company Number: US-PFIZER INC-2007084727

PATIENT
  Sex: Male
  Weight: 84.37 kg

DRUGS (4)
  1. CAVERJECT [Suspect]
     Indication: ERECTILE DYSFUNCTION
     Dates: start: 20070926
  2. ANTIHYPERTENSIVES [Concomitant]
  3. ANTI-DIABETICS [Concomitant]
  4. IBUPROFEN TABLETS [Concomitant]

REACTIONS (3)
  - APPLICATION SITE HAEMATOMA [None]
  - DRUG INEFFECTIVE [None]
  - MEDICAL DEVICE COMPLICATION [None]
